FAERS Safety Report 10206611 (Version 1)
Quarter: 2014Q2

REPORT INFORMATION
  Report Type: Spontaneous
  Country: US (occurrence: US)
  Receive Date: 20140530
  Receipt Date: 20140530
  Transmission Date: 20141212
  Serious: Yes (Other)
  Sender: FDA-Public Use
  Company Number: US-GLAXOSMITHKLINE-A1065460A

PATIENT
  Age: 38 Year
  Sex: Female

DRUGS (2)
  1. FLOLAN [Suspect]
     Indication: PULMONARY ARTERIAL HYPERTENSION
     Dosage: 21NGKM CONTINUOUS
     Route: 042
     Dates: start: 20090907
  2. COUMADIN [Concomitant]

REACTIONS (1)
  - Infusion site infection [Unknown]
